FAERS Safety Report 12485967 (Version 1)
Quarter: 2016Q2

REPORT INFORMATION
  Report Type: Spontaneous
  Country: US (occurrence: US)
  Receive Date: 20160621
  Receipt Date: 20160621
  Transmission Date: 20160815
  Serious: No
  Sender: FDA-Public Use
  Company Number: US-ROCHE-1579670

PATIENT
  Sex: Male

DRUGS (3)
  1. ADVOCARD [Concomitant]
  2. OMEGA 3 [Concomitant]
     Active Substance: OMEGA-3 FATTY ACIDS
  3. CELLCEPT [Suspect]
     Active Substance: MYCOPHENOLATE MOFETIL\MYCOPHENOLATE MOFETIL HYDROCHLORIDE
     Indication: POLYMYOSITIS
     Route: 065
     Dates: start: 201505

REACTIONS (3)
  - Pain [Not Recovered/Not Resolved]
  - Off label use [Unknown]
  - Back disorder [Unknown]
